FAERS Safety Report 10989122 (Version 3)
Quarter: 2015Q3

REPORT INFORMATION
  Report Type: Spontaneous
  Country: US (occurrence: US)
  Receive Date: 20150406
  Receipt Date: 20150924
  Transmission Date: 20151125
  Serious: Yes (Other)
  Sender: FDA-Public Use
  Company Number: US-MERCK-1504USA001419

PATIENT
  Age: 47 Year
  Sex: Male
  Weight: 74.8 kg

DRUGS (3)
  1. KEYTRUDA [Suspect]
     Active Substance: PEMBROLIZUMAB
     Dosage: 150 MG, Q3W
     Route: 042
     Dates: start: 20150908
  2. KEYTRUDA [Suspect]
     Active Substance: PEMBROLIZUMAB
     Indication: METASTATIC MALIGNANT MELANOMA
     Dosage: 150 MG, Q3W
     Route: 042
     Dates: start: 20150105, end: 20150330
  3. KEYTRUDA [Suspect]
     Active Substance: PEMBROLIZUMAB
     Dosage: 150 MG, Q3W
     Route: 042
     Dates: start: 20150413

REACTIONS (17)
  - Chills [Not Recovered/Not Resolved]
  - Myalgia [Recovering/Resolving]
  - Muscular weakness [Recovering/Resolving]
  - Pain [Recovering/Resolving]
  - Dyspnoea exertional [Recovering/Resolving]
  - Adrenal insufficiency [Unknown]
  - Dyspnoea [Recovering/Resolving]
  - Pollakiuria [Unknown]
  - Joint swelling [Unknown]
  - Hepatic enzyme increased [Not Recovered/Not Resolved]
  - Palpitations [Unknown]
  - Decreased appetite [Recovered/Resolved]
  - Diarrhoea [Recovered/Resolved]
  - Fatigue [Recovered/Resolved]
  - Cough [Not Recovered/Not Resolved]
  - Nausea [Recovering/Resolving]
  - Constipation [Unknown]

NARRATIVE: CASE EVENT DATE: 20150119
